FAERS Safety Report 20389142 (Version 2)
Quarter: 2022Q3

REPORT INFORMATION
  Report Type: Spontaneous
  Country: US (occurrence: None)
  Receive Date: 20220128
  Receipt Date: 20220728
  Transmission Date: 20221027
  Serious: Yes (Other)
  Sender: FDA-Public Use
  Company Number: 2022A037362

PATIENT
  Age: 21090 Day
  Sex: Male
  Weight: 106.1 kg

DRUGS (51)
  1. NEXIUM [Suspect]
     Active Substance: ESOMEPRAZOLE MAGNESIUM
     Indication: Gastrooesophageal reflux disease
     Route: 048
     Dates: start: 2007, end: 2017
  2. NEXIUM [Suspect]
     Active Substance: ESOMEPRAZOLE MAGNESIUM
     Indication: Gastrooesophageal reflux disease
     Route: 048
     Dates: start: 2007, end: 2017
  3. NEXIUM [Suspect]
     Active Substance: ESOMEPRAZOLE MAGNESIUM
     Indication: Gastrooesophageal reflux disease
     Route: 048
     Dates: start: 2015
  4. NEXIUM [Suspect]
     Active Substance: ESOMEPRAZOLE MAGNESIUM
     Indication: Gastrooesophageal reflux disease
     Route: 048
     Dates: start: 2015
  5. NEXIUM 24HR [Suspect]
     Active Substance: ESOMEPRAZOLE MAGNESIUM
     Indication: Gastrooesophageal reflux disease
     Route: 048
     Dates: start: 2014, end: 2017
  6. NEXIUM 24HR [Suspect]
     Active Substance: ESOMEPRAZOLE MAGNESIUM
     Indication: Gastrooesophageal reflux disease
     Route: 048
     Dates: start: 2014, end: 2017
  7. PANTOPRAZOLE [Suspect]
     Active Substance: PANTOPRAZOLE
     Indication: Gastrooesophageal reflux disease
     Dosage: GENERIC
     Route: 065
     Dates: start: 2013
  8. PANTOPRAZOLE [Suspect]
     Active Substance: PANTOPRAZOLE
     Indication: Gastrooesophageal reflux disease
     Dosage: GENERIC
     Route: 065
     Dates: start: 2013
  9. ACETAMINOPHEN\HYDROCODONE BITARTRATE [Concomitant]
     Active Substance: ACETAMINOPHEN\HYDROCODONE BITARTRATE
  10. METHOCARBAMOL [Concomitant]
     Active Substance: METHOCARBAMOL
  11. PNEUMOVAX 23 [Concomitant]
     Active Substance: PNEUMOCOCCAL VACCINE, POLYVALENT 23
  12. FLUVIRIN NOS [Concomitant]
     Active Substance: INFLUENZA VIRUS VACCINE
  13. ABILIFY [Concomitant]
     Active Substance: ARIPIPRAZOLE
  14. ZOLPIDEM [Concomitant]
     Active Substance: ZOLPIDEM TARTRATE
  15. LISINOPRIL [Concomitant]
     Active Substance: LISINOPRIL
  16. PROAIR HFA [Concomitant]
     Active Substance: ALBUTEROL SULFATE
  17. FLUCONAZOLE [Concomitant]
     Active Substance: FLUCONAZOLE
  18. VALACYCLOVIR [Concomitant]
     Active Substance: VALACYCLOVIR HYDROCHLORIDE
  19. ATORVASTATIN [Concomitant]
     Active Substance: ATORVASTATIN
  20. METFORMIN [Concomitant]
     Active Substance: METFORMIN HYDROCHLORIDE
  21. GLIPIZIDE [Concomitant]
     Active Substance: GLIPIZIDE
  22. HALOPERIDOL [Concomitant]
     Active Substance: HALOPERIDOL
  23. DULOXETINE [Concomitant]
     Active Substance: DULOXETINE
  24. POLYETHYLENE GLYCOL [Concomitant]
     Active Substance: POLYETHYLENE GLYCOL
  25. DICLOFENAC [Concomitant]
     Active Substance: DICLOFENAC
  26. NYSTATIN [Concomitant]
     Active Substance: NYSTATIN
  27. NAPROXEN [Concomitant]
     Active Substance: NAPROXEN
  28. LEVETIRACETAM [Concomitant]
     Active Substance: LEVETIRACETAM
  29. OXYCODONE AND ACETAMINOPHEN [Concomitant]
     Active Substance: ACETAMINOPHEN\OXYCODONE HYDROCHLORIDE
  30. CHLORHEXIDINE [Concomitant]
     Active Substance: CHLORHEXIDINE
  31. SULFAMETHOXAZOLE\TRIMETHOPRIM [Concomitant]
     Active Substance: SULFAMETHOXAZOLE\TRIMETHOPRIM
  32. BACITRACIN [Concomitant]
     Active Substance: BACITRACIN
  33. VIAGRA [Concomitant]
     Active Substance: SILDENAFIL CITRATE
  34. AMPICILLIN [Concomitant]
     Active Substance: AMPICILLIN
  35. ACYCLOVIR [Concomitant]
     Active Substance: ACYCLOVIR
  36. VITAMIN D [Concomitant]
     Active Substance: VITAMIN D NOS
  37. PROCTOZONE [Concomitant]
     Active Substance: HYDROCORTISONE
  38. DETROL [Concomitant]
     Active Substance: TOLTERODINE TARTRATE
  39. CEPHALEXIN [Concomitant]
     Active Substance: CEPHALEXIN
  40. SODIUM CHLORIDE [Concomitant]
     Active Substance: SODIUM CHLORIDE
  41. LOVASTATIN [Concomitant]
     Active Substance: LOVASTATIN
  42. VESICARE [Concomitant]
     Active Substance: SOLIFENACIN SUCCINATE
  43. ALLEGRA [Concomitant]
     Active Substance: FEXOFENADINE HYDROCHLORIDE
  44. HEPARIN [Concomitant]
     Active Substance: HEPARIN SODIUM
  45. MELOXICAM [Concomitant]
     Active Substance: MELOXICAM
  46. GENTAMICIN [Concomitant]
     Active Substance: GENTAMICIN
  47. PENICILLIN [Concomitant]
     Active Substance: PENICILLIN
  48. HYDROCHLOROTHIAZIDE [Concomitant]
     Active Substance: HYDROCHLOROTHIAZIDE
  49. ACETAMINOPHEN [Concomitant]
     Active Substance: ACETAMINOPHEN
  50. ROLAIDS [Concomitant]
     Active Substance: CALCIUM CARBONATE\MAGNESIUM HYDROXIDE
  51. MYLANTA [Concomitant]
     Active Substance: ALUMINUM HYDROXIDE\DIMETHICONE\MAGNESIUM HYDROXIDE

REACTIONS (3)
  - Acute kidney injury [Not Recovered/Not Resolved]
  - Renal failure [Unknown]
  - Gastrooesophageal reflux disease [Not Recovered/Not Resolved]

NARRATIVE: CASE EVENT DATE: 20170718
